FAERS Safety Report 16062725 (Version 1)
Quarter: 2019Q1

REPORT INFORMATION
  Report Type: Spontaneous
  Country: US (occurrence: US)
  Receive Date: 20190312
  Receipt Date: 20190312
  Transmission Date: 20190418
  Serious: No
  Sender: FDA-Public Use
  Company Number: US-009507513-1902USA004552

PATIENT
  Age: 70 Year
  Sex: Female

DRUGS (5)
  1. DULERA [Suspect]
     Active Substance: FORMOTEROL FUMARATE DIHYDRATE\MOMETASONE FUROATE
     Indication: ASTHMA
     Dosage: UNK
     Route: 055
  2. VERAPAMIL [Concomitant]
     Active Substance: VERAPAMIL HYDROCHLORIDE
  3. DULERA [Suspect]
     Active Substance: FORMOTEROL FUMARATE DIHYDRATE\MOMETASONE FUROATE
     Dosage: UNK
     Route: 055
  4. PROVENTIL [Suspect]
     Active Substance: ALBUTEROL
     Indication: COUGH
  5. PROVENTIL [Suspect]
     Active Substance: ALBUTEROL
     Indication: DYSPNOEA

REACTIONS (6)
  - Cough [Recovering/Resolving]
  - Cough [Not Recovered/Not Resolved]
  - Dyspnoea [Not Recovered/Not Resolved]
  - Product quality issue [Unknown]
  - Dyspnoea [Recovering/Resolving]
  - Poor quality device used [Unknown]

NARRATIVE: CASE EVENT DATE: 20190209
